FAERS Safety Report 19198117 (Version 1)
Quarter: 2021Q2

REPORT INFORMATION
  Report Type: Spontaneous
  Country: TR (occurrence: TR)
  Receive Date: 20210429
  Receipt Date: 20210429
  Transmission Date: 20210717
  Serious: Yes (Other)
  Sender: FDA-Public Use
  Company Number: TR-ASTRAZENECA-2021A307399

PATIENT
  Age: 73 Year
  Sex: Male
  Weight: 78 kg

DRUGS (8)
  1. IVABRADINE [Concomitant]
     Active Substance: IVABRADINE
     Route: 065
  2. AMPICILLIN?SULBACTAM [Concomitant]
     Active Substance: AMPICILLIN SODIUM\SULBACTAM SODIUM
     Indication: ENDOCARDITIS
     Route: 065
  3. DAPTOMYCIN. [Interacting]
     Active Substance: DAPTOMYCIN
     Indication: ENDOCARDITIS
     Route: 065
  4. METFORMIN [Concomitant]
     Active Substance: METFORMIN HYDROCHLORIDE
     Route: 065
  5. GINKGO BILOBA [Concomitant]
     Active Substance: GINKGO
     Route: 065
  6. ROSUVASTATIN. [Suspect]
     Active Substance: ROSUVASTATIN
     Route: 048
  7. APIXABAN [Concomitant]
     Active Substance: APIXABAN
     Route: 065
  8. TRIMETAZIDINE [Concomitant]
     Active Substance: TRIMETAZIDINE
     Route: 065

REACTIONS (2)
  - Drug interaction [Recovered/Resolved]
  - Myositis [Recovered/Resolved]
